FAERS Safety Report 9140228 (Version 1)
Quarter: 2013Q1

REPORT INFORMATION
  Report Type: Spontaneous
  Country: US (occurrence: US)
  Receive Date: 20130305
  Receipt Date: 20130305
  Transmission Date: 20140127
  Serious: No
  Sender: FDA-Public Use
  Company Number: US-PFIZER INC-2013072924

PATIENT
  Age: 53 Year
  Sex: Female

DRUGS (4)
  1. XELJANZ [Suspect]
     Dosage: 5 MG, 2X/DAY
     Route: 048
  2. SUCRALFATE [Concomitant]
     Dosage: UNK
  3. LANSOPRAZOLE [Concomitant]
     Dosage: UNK
  4. METHOCARBAMOL [Concomitant]
     Dosage: UNK

REACTIONS (3)
  - Cerumen impaction [Recovered/Resolved]
  - Ear discomfort [Recovered/Resolved]
  - Vertigo [Recovered/Resolved]
